FAERS Safety Report 17076368 (Version 1)
Quarter: 2019Q4

REPORT INFORMATION
  Report Type: Report from Study
  Country: JP (occurrence: JP)
  Receive Date: 20191126
  Receipt Date: 20191126
  Transmission Date: 20200122
  Serious: Yes (Other)
  Sender: FDA-Public Use
  Company Number: JP-BAYER-2019-208869

PATIENT

DRUGS (1)
  1. IOPROMIDE. [Suspect]
     Active Substance: IOPROMIDE

REACTIONS (1)
  - Nephropathy toxic [None]
